FAERS Safety Report 18680594 (Version 5)
Quarter: 2021Q2

REPORT INFORMATION
  Report Type: Other
  Country: AR (occurrence: AR)
  Receive Date: 20201230
  Receipt Date: 20210517
  Transmission Date: 20210717
  Serious: Yes (Other)
  Sender: FDA-Public Use
  Company Number: AR-ROCHE-2740122

PATIENT
  Age: 21 Year
  Sex: Female

DRUGS (4)
  1. XOLAIR [Suspect]
     Active Substance: OMALIZUMAB
     Route: 058
  2. XOLAIR [Suspect]
     Active Substance: OMALIZUMAB
     Route: 058
  3. XOLAIR [Suspect]
     Active Substance: OMALIZUMAB
     Indication: CHRONIC SPONTANEOUS URTICARIA
     Route: 058
     Dates: start: 20201116
  4. XOLAIR [Suspect]
     Active Substance: OMALIZUMAB
     Route: 065
     Dates: start: 20201217

REACTIONS (12)
  - Malaise [Recovered/Resolved]
  - Urticaria [Not Recovered/Not Resolved]
  - Gastrointestinal disorder [Unknown]
  - Psychotic disorder [Unknown]
  - Anxiety [Unknown]
  - Drug ineffective [Unknown]
  - Tachycardia [Unknown]
  - Malaise [Unknown]
  - Mental disorder [Recovered/Resolved]
  - Headache [Recovered/Resolved]
  - Dizziness [Recovering/Resolving]
  - Disease progression [Unknown]

NARRATIVE: CASE EVENT DATE: 20201217
